FAERS Safety Report 8973323 (Version 1)
Quarter: 2012Q4

REPORT INFORMATION
  Report Type: 
  Country: US (occurrence: US)
  Receive Date: 20121218
  Receipt Date: 20121218
  Transmission Date: 20130627
  Serious: No
  Sender: FDA-Public Use
  Company Number: US-BRISTOL-MYERS SQUIBB COMPANY-16446684

PATIENT
  Age: 62 Year
  Sex: Male

DRUGS (3)
  1. ABILIFY TABS 30 MG [Suspect]
     Dosage: Initially given 30mg then reduced to 15mg
  2. CELEXA [Concomitant]
  3. KLONOPIN [Concomitant]

REACTIONS (1)
  - Tremor [Recovering/Resolving]
